FAERS Safety Report 7493298-7 (Version None)
Quarter: 2011Q2

REPORT INFORMATION
  Report Type: 
  Country: None (occurrence: None)
  Receive Date: 20110520
  Receipt Date: 20110516
  Transmission Date: 20111010
  Serious: Yes (Hospitalization, Other)
  Sender: FDA-Public Use
  Company Number: US-SANOFI-AVENTIS-2011SA016493

PATIENT
  Age: 79 Year
  Sex: Female
  Weight: 58.96 kg

DRUGS (13)
  1. SPIRONOLACTONE [Concomitant]
     Indication: CARDIAC FAILURE CONGESTIVE
     Dosage: DOSE-2 IN 1 DAY
     Route: 048
  2. NEXIUM [Concomitant]
     Dosage: 1 IN 1 DAY
     Route: 048
  3. LIPITOR [Concomitant]
     Indication: BLOOD CHOLESTEROL ABNORMAL
     Route: 048
  4. LASIX [Suspect]
     Indication: RENAL DISORDER
     Dosage: 1 IN 1 DAY
     Route: 048
  5. ACETAMINOPHEN [Concomitant]
     Indication: PAIN
     Dosage: DOSE- 1 IN 1 AS REQUIRED
     Route: 048
  6. ASPIRIN [Concomitant]
     Indication: CARDIAC DISORDER
     Dosage: DOSE-1 IN 1 DAY
     Route: 048
  7. CALCIUM/MAGNESIUM [Concomitant]
     Route: 048
  8. VITAMIN B COMPLEX CAP [Concomitant]
     Route: 048
  9. WARFARIN SODIUM [Suspect]
     Dosage: 1/2 TABLET QD TUESDAY AND THURSDAY
     Route: 065
     Dates: start: 20080601
  10. DIGOXIN [Concomitant]
     Indication: HEART RATE ABNORMAL
     Route: 048
  11. VITAMIN D [Concomitant]
     Dosage: DOSE:400 UNIT(S)
     Route: 048
  12. DARVOCET-N 50 [Concomitant]
     Indication: PAIN
  13. ZINC [Concomitant]
     Route: 048

REACTIONS (24)
  - BREAST PAIN [None]
  - ATRIAL FIBRILLATION [None]
  - SINUS TACHYCARDIA [None]
  - BLOOD PRESSURE DIASTOLIC DECREASED [None]
  - RENAL FAILURE [None]
  - HAEMOPTYSIS [None]
  - INSOMNIA [None]
  - CORONARY ARTERY DISEASE [None]
  - SUBACUTE ENDOCARDITIS [None]
  - CORONARY ARTERY OCCLUSION [None]
  - OEDEMA PERIPHERAL [None]
  - LEFT ATRIAL DILATATION [None]
  - HAEMORRHOIDAL HAEMORRHAGE [None]
  - WEIGHT DECREASED [None]
  - CARDIAC FAILURE CONGESTIVE [None]
  - DYSPNOEA [None]
  - MITRAL VALVE INCOMPETENCE [None]
  - DIVERTICULITIS [None]
  - PULMONARY OEDEMA [None]
  - NIGHT SWEATS [None]
  - MYOCARDIAL INFARCTION [None]
  - HEART RATE IRREGULAR [None]
  - INTERNATIONAL NORMALISED RATIO INCREASED [None]
  - HAEMATEMESIS [None]
